FAERS Safety Report 21885427 (Version 1)
Quarter: 2023Q1

REPORT INFORMATION
  Report Type: Spontaneous
  Country: US (occurrence: US)
  Receive Date: 20230119
  Receipt Date: 20230119
  Transmission Date: 20230418
  Serious: No
  Sender: FDA-Public Use
  Company Number: US-SA-SAC20230118001328

PATIENT
  Sex: Male
  Weight: 108.8 kg

DRUGS (8)
  1. DUPIXENT [Suspect]
     Active Substance: DUPILUMAB
     Indication: Dermatitis atopic
     Dosage: 300 MG, QOW
     Route: 058
  2. TAMSULOSIN [Concomitant]
     Active Substance: TAMSULOSIN
  3. TRILIPIX [Concomitant]
     Active Substance: FENOFIBRIC ACID
  4. EUCRISA [Concomitant]
     Active Substance: CRISABOROLE
  5. LORAZEPAM [Concomitant]
     Active Substance: LORAZEPAM
  6. FENOFIBRATE [Concomitant]
     Active Substance: FENOFIBRATE
  7. CYCLOBENZAPRINE [Concomitant]
     Active Substance: CYCLOBENZAPRINE
  8. ACETAMINOPHEN\HYDROCODONE [Concomitant]
     Active Substance: ACETAMINOPHEN\HYDROCODONE

REACTIONS (3)
  - Stress [Unknown]
  - Anxiety [Unknown]
  - Palpitations [Unknown]
